FAERS Safety Report 13050639 (Version 2)
Quarter: 2017Q3

REPORT INFORMATION
  Report Type: Spontaneous
  Country: US (occurrence: US)
  Receive Date: 20161221
  Receipt Date: 20170908
  Transmission Date: 20171127
  Serious: Yes (Other)
  Sender: FDA-Public Use
  Company Number: US-PFIZER INC-2016581120

PATIENT
  Age: 58 Year
  Sex: Female

DRUGS (2)
  1. IBRANCE [Suspect]
     Active Substance: PALBOCICLIB
     Indication: BREAST CANCER
     Dosage: 125 MG, DAILY
     Route: 048
     Dates: start: 20161001
  2. IBRANCE [Suspect]
     Active Substance: PALBOCICLIB
     Dosage: 125 MG, CYCLIC (DAILY FOR 21 DAYS)
     Route: 048
     Dates: start: 20161019

REACTIONS (10)
  - Fatigue [Unknown]
  - Vertigo [Recovered/Resolved]
  - Leukopenia [Unknown]
  - Therapeutic response unexpected [Unknown]
  - Diarrhoea [Unknown]
  - Anaemia [Unknown]
  - Alopecia [Unknown]
  - Dizziness [Unknown]
  - Joint stiffness [Unknown]
  - Pre-existing condition improved [Unknown]

NARRATIVE: CASE EVENT DATE: 20161212
